FAERS Safety Report 7545702-3 (Version None)
Quarter: 2011Q2

REPORT INFORMATION
  Report Type: 
  Country: None (occurrence: None)
  Receive Date: 20110613
  Receipt Date: 20110613
  Transmission Date: 20111010
  Serious: Yes (Hospitalization, Other)
  Sender: FDA-Public Use
  Company Number: None

PATIENT
  Age: 39 Year
  Sex: Female
  Weight: 68.0396 kg

DRUGS (1)
  1. DEPO-MEDROL [Suspect]
     Indication: BONE PAIN
     Dosage: 80MG 1 SHOT INTRADISCAL (INTRASPINAL)
     Route: 024
     Dates: start: 20110519, end: 20110519

REACTIONS (5)
  - GASTROINTESTINAL DISORDER [None]
  - LIPASE INCREASED [None]
  - DYSPNOEA [None]
  - INFLUENZA LIKE ILLNESS [None]
  - FATIGUE [None]
